FAERS Safety Report 4744557-X (Version None)
Quarter: 2005Q3

REPORT INFORMATION
  Report Type: 
  Country: None (occurrence: None)
  Receive Date: 20050812
  Receipt Date: 20050803
  Transmission Date: 20060218
  Serious: Yes (Life-Threatening)
  Sender: FDA-Public Use
  Company Number: ES-ABBOTT-05P-144-0307402-00

PATIENT
  Age: 6 Year
  Sex: Female
  Weight: 20 kg

DRUGS (1)
  1. KLACID FOR ORAL SUSPENSION [Suspect]
     Indication: NASOPHARYNGITIS
     Route: 048
     Dates: start: 20050429, end: 20050506

REACTIONS (2)
  - DELIRIUM [None]
  - NEUROSIS [None]
